FAERS Safety Report 12009644 (Version 1)
Quarter: 2016Q1

REPORT INFORMATION
  Report Type: Spontaneous
  Country: US (occurrence: US)
  Receive Date: 20160205
  Receipt Date: 20160205
  Transmission Date: 20160526
  Serious: No
  Sender: FDA-Public Use
  Company Number: US-PFIZER INC-2016050092

PATIENT
  Age: 71 Year
  Sex: Female
  Weight: 60.32 kg

DRUGS (2)
  1. INLYTA [Suspect]
     Active Substance: AXITINIB
     Indication: RENAL CANCER
     Dosage: 5 MG, 2X/DAY
     Route: 048
  2. ZOMETA [Suspect]
     Active Substance: ZOLEDRONIC ACID
     Indication: BONE DISORDER
     Dosage: UNK, MONTHLY

REACTIONS (7)
  - Red blood cell count decreased [Unknown]
  - Mean cell volume increased [Unknown]
  - Fatigue [Unknown]
  - Renal cancer [Unknown]
  - Haematocrit decreased [Unknown]
  - Disease progression [Unknown]
  - Red cell distribution width decreased [Unknown]
